FAERS Safety Report 5129544-4 (Version None)
Quarter: 2006Q4

REPORT INFORMATION
  Report Type: 
  Country: None (occurrence: None)
  Receive Date: 20061018
  Receipt Date: 20061011
  Transmission Date: 20070319
  Serious: Yes (Hospitalization)
  Sender: FDA-Public Use
  Company Number: DK-BAYER-200614598GDS

PATIENT
  Age: 72 Year
  Sex: Male
  Weight: 104 kg

DRUGS (7)
  1. SORAFENIB [Suspect]
     Indication: RENAL CELL CARCINOMA STAGE UNSPECIFIED
     Dosage: TOTAL DAILY DOSE: 800 MG
     Route: 048
     Dates: start: 20060627, end: 20061008
  2. MODIFENAC [Concomitant]
     Indication: ARTHRITIS
     Route: 065
     Dates: start: 20020101
  3. GLUCOSAMIN [Concomitant]
     Indication: ARTHRITIS
     Route: 065
     Dates: start: 20050101
  4. PONDOCILLIN [Concomitant]
     Indication: PARONYCHIA
     Route: 065
     Dates: start: 20060717, end: 20060724
  5. IMODIUM [Concomitant]
     Indication: DIARRHOEA
     Route: 065
     Dates: start: 20060728
  6. NEXIUM [Concomitant]
     Indication: HAEMATEMESIS
     Route: 065
     Dates: start: 20061009
  7. GLUCOSIS CON/ACTRAPID [Concomitant]
     Indication: BLOOD POTASSIUM INCREASED
     Dosage: UNIT DOSE: 12 IU
     Route: 065
     Dates: start: 20061009

REACTIONS (7)
  - DEHYDRATION [None]
  - DIALYSIS [None]
  - DIARRHOEA [None]
  - INFECTION [None]
  - NAUSEA [None]
  - RENAL FAILURE [None]
  - VOMITING [None]
